FAERS Safety Report 13117041 (Version 1)
Quarter: 2017Q1

REPORT INFORMATION
  Report Type: Report from Study
  Country: BR (occurrence: BR)
  Receive Date: 20170116
  Receipt Date: 20170116
  Transmission Date: 20170428
  Serious: Yes (Life-Threatening, Hospitalization, Other)
  Sender: FDA-Public Use
  Company Number: PHHY2017BR004939

PATIENT
  Sex: Female
  Weight: 70 kg

DRUGS (5)
  1. EXELON PATCH [Suspect]
     Active Substance: RIVASTIGMINE
     Dosage: 0.5 DF (9.5 MG, (PATCH 10 CM2)), FO HALF DAY
     Route: 062
  2. EXELON PATCH [Suspect]
     Active Substance: RIVASTIGMINE
     Dosage: 0.5 DF, BID 9.5 MG, (PATCH 10 CM2)), (HALF IN THE MORNING AND HALF AT NIGHT)
     Route: 062
  3. EXELON PATCH [Suspect]
     Active Substance: RIVASTIGMINE
     Dosage: 9.5 MG, QD (PATCH 10)
     Route: 062
  4. EXELON PATCH [Suspect]
     Active Substance: RIVASTIGMINE
     Indication: DEMENTIA ALZHEIMER^S TYPE
     Dosage: 4.6 MG, QD (PATCH 5)
     Route: 062
  5. EXELON [Suspect]
     Active Substance: RIVASTIGMINE TARTRATE
     Indication: DEMENTIA ALZHEIMER^S TYPE
     Dosage: 5 MG, QD
     Route: 048

REACTIONS (15)
  - Syncope [Unknown]
  - Loss of consciousness [Unknown]
  - Drug ineffective [Unknown]
  - Cognitive disorder [Unknown]
  - Malaise [Unknown]
  - Headache [Unknown]
  - Fall [Unknown]
  - Confusional state [Unknown]
  - Wrong technique in product usage process [Unknown]
  - Vomiting [Unknown]
  - Weight decreased [Unknown]
  - Fear [Unknown]
  - Feeling abnormal [Unknown]
  - Dementia Alzheimer^s type [Unknown]
  - Depressed mood [Unknown]

NARRATIVE: CASE EVENT DATE: 2016
